FAERS Safety Report 13104989 (Version 1)
Quarter: 2017Q1

REPORT INFORMATION
  Report Type: Spontaneous
  Country: US (occurrence: US)
  Receive Date: 20170111
  Receipt Date: 20170111
  Transmission Date: 20170428
  Serious: No
  Sender: FDA-Public Use
  Company Number: US-GLAXOSMITHKLINE-US2017001532

PATIENT
  Age: 84 Year
  Sex: Male

DRUGS (1)
  1. ABREVA [Suspect]
     Active Substance: DOCOSANOL
     Indication: FEELING COLD
     Dosage: UNK

REACTIONS (2)
  - Incorrect drug administration duration [Unknown]
  - Product use issue [Unknown]
